FAERS Safety Report 5478579-0 (Version None)
Quarter: 2007Q4

REPORT INFORMATION
  Report Type: 
  Country: None (occurrence: None)
  Receive Date: 20071005
  Receipt Date: 20070927
  Transmission Date: 20080405
  Serious: Yes (Hospitalization)
  Sender: FDA-Public Use
  Company Number: DE-BRISTOL-MYERS SQUIBB COMPANY-13923305

PATIENT
  Age: 64 Year
  Sex: Female

DRUGS (6)
  1. TAXOL [Suspect]
     Indication: BREAST CANCER
     Route: 042
     Dates: start: 20070702, end: 20070918
  2. CYCLOPHOSPHAMIDE [Suspect]
     Indication: BREAST CANCER
     Route: 042
     Dates: start: 20070503, end: 20070618
  3. EPIRUBICIN [Suspect]
     Indication: BREAST CANCER
     Route: 042
     Dates: start: 20070503, end: 20070618
  4. XELODA [Suspect]
     Indication: BREAST CANCER
     Route: 048
     Dates: start: 20070702, end: 20070910
  5. DARBEPOETIN ALFA [Concomitant]
     Route: 058
     Dates: start: 20070504
  6. NEULASTA [Concomitant]
     Route: 058
     Dates: start: 20070503

REACTIONS (1)
  - EMBOLISM [None]
